FAERS Safety Report 21114721 (Version 1)
Quarter: 2022Q3

REPORT INFORMATION
  Report Type: Spontaneous
  Country: US (occurrence: US)
  Receive Date: 20220721
  Receipt Date: 20220721
  Transmission Date: 20221027
  Serious: No
  Sender: FDA-Public Use
  Company Number: US-MEDEXUS PHARMA, INC.-2022MED00005

PATIENT
  Age: 69 Year
  Sex: Female

DRUGS (12)
  1. RASUVO [Suspect]
     Active Substance: METHOTREXATE SODIUM
     Indication: Psoriatic arthropathy
     Dosage: 15 MG INJECTED IN STOMACH, 1X/WEEK
     Route: 030
  2. RASUVO [Suspect]
     Active Substance: METHOTREXATE SODIUM
     Indication: Rheumatoid arthritis
  3. COSENTYX [Concomitant]
     Active Substance: SECUKINUMAB
     Dosage: 300 MG, EVERY 28 DAYS
  4. FOLIC ACID [Concomitant]
     Active Substance: FOLIC ACID
  5. CALCIUM [Concomitant]
     Active Substance: CALCIUM
  6. VITAMIN D3 [Concomitant]
     Active Substance: CHOLECALCIFEROL
  7. LOW DOSE ASPIRIN [Concomitant]
     Active Substance: ASPIRIN
  8. OTEZLA [Concomitant]
     Active Substance: APREMILAST
  9. OMEPRAZOLE [Concomitant]
     Active Substance: OMEPRAZOLE
     Dosage: 40 MG
  10. ZETIA [Concomitant]
     Active Substance: EZETIMIBE
     Dosage: 10 MG
  11. SYNTHROID [Concomitant]
     Active Substance: LEVOTHYROXINE SODIUM
     Dosage: 75 ?G
  12. TYLENOL [Concomitant]
     Active Substance: ACETAMINOPHEN
     Dosage: UNK, AS NEEDED

REACTIONS (5)
  - Injection site pain [Recovered/Resolved]
  - Injection site bruising [Recovered/Resolved]
  - Incorrect route of product administration [Not Recovered/Not Resolved]
  - Product use complaint [Recovered/Resolved]
  - Device malfunction [Not Recovered/Not Resolved]

NARRATIVE: CASE EVENT DATE: 20211230
